FAERS Safety Report 9710075 (Version 3)
Quarter: 2013Q4

REPORT INFORMATION
  Report Type: Report from Study
  Country: US (occurrence: US)
  Receive Date: 20131126
  Receipt Date: 20131204
  Transmission Date: 20140711
  Serious: Yes (Hospitalization)
  Sender: FDA-Public Use
  Company Number: US-JNJFOC-20131111765

PATIENT
  Age: 8 Year
  Sex: Male
  Weight: 18.45 kg

DRUGS (5)
  1. REMICADE [Suspect]
     Indication: CROHN^S DISEASE
     Route: 042
     Dates: start: 20111122
  2. 5-ASA [Concomitant]
     Route: 048
  3. METHOTREXATE [Concomitant]
     Route: 065
  4. ZOFRAN [Concomitant]
     Route: 065
  5. FERROUS SULFATE [Concomitant]
     Route: 065

REACTIONS (1)
  - Anal abscess [Recovered/Resolved]
